FAERS Safety Report 9476039 (Version 2)
Quarter: 2013Q3

REPORT INFORMATION
  Report Type: Spontaneous
  Country: ZA (occurrence: ZA)
  Receive Date: 20130826
  Receipt Date: 20130912
  Transmission Date: 20140515
  Serious: Yes (Hospitalization, Disabling)
  Sender: FDA-Public Use
  Company Number: ZA-NOVOPROD-385856

PATIENT
  Sex: Male

DRUGS (2)
  1. NOVOMIX 30 FLEXPEN [Suspect]
     Indication: PRODUCT USED FOR UNKNOWN INDICATION
     Dosage: UNK
     Route: 065
  2. METFORMIN [Concomitant]

REACTIONS (2)
  - Laparotomy [Recovering/Resolving]
  - Amputation [Recovering/Resolving]
